FAERS Safety Report 20912051 (Version 1)
Quarter: 2022Q2

REPORT INFORMATION
  Report Type: Spontaneous
  Country: US (occurrence: US)
  Receive Date: 20220603
  Receipt Date: 20220603
  Transmission Date: 20220721
  Serious: No
  Sender: FDA-Public Use
  Company Number: US-Fresenius Medical Care Renal Therapies Group-FMC-2205-000754

PATIENT
  Age: 88 Year
  Sex: Male
  Weight: 78 kg

DRUGS (3)
  1. DELFLEX WITH DEXTROSE 1.5% LOW MAGNESIUM LOW CALCIUM [Suspect]
     Active Substance: CALCIUM CHLORIDE\DEXTROSE\MAGNESIUM CHLORIDE\SODIUM CHLORIDE\SODIUM LACTATE
     Indication: End stage renal disease
     Dosage: EXCHANGES = 4, FILL VOLUME = 2800 ML, DWELL TIME = 1.25 HOURS, LAST FILL = N/A, DAYTIME DWELL = N/A.
     Route: 033
     Dates: start: 20190703
  2. DELFLEX WITH DEXTROSE 2.5% LOW MAGNESIUM LOW CALCIUM [Suspect]
     Active Substance: CALCIUM CHLORIDE\DEXTROSE\MAGNESIUM CHLORIDE\SODIUM CHLORIDE\SODIUM LACTATE
     Indication: End stage renal disease
     Dosage: EXCHANGES = 4, FILL VOLUME = 2800 ML, DWELL TIME = 1.25 HOURS, LAST FILL = N/A, DAYTIME DWELL = N/A.
     Route: 033
     Dates: start: 20190703
  3. DELFLEX WITH DEXTROSE 4.25% LOW MAGNESIUM LOW CALCIUM [Suspect]
     Active Substance: CALCIUM CHLORIDE\DEXTROSE\MAGNESIUM CHLORIDE\SODIUM CHLORIDE\SODIUM LACTATE
     Indication: End stage renal disease
     Dosage: EXCHANGES = 4, FILL VOLUME = 2800 ML, DWELL TIME = 1.25 HOURS, LAST FILL = N/A, DAYTIME DWELL = N/A.
     Route: 033
     Dates: start: 20190703

REACTIONS (1)
  - Inguinal hernia [Recovered/Resolved]
